FAERS Safety Report 10178240 (Version 1)
Quarter: 2014Q2

REPORT INFORMATION
  Report Type: Spontaneous
  Country: AU (occurrence: AU)
  Receive Date: 20140519
  Receipt Date: 20140519
  Transmission Date: 20141212
  Serious: Yes (Death, Life-Threatening)
  Sender: FDA-Public Use
  Company Number: AU-BRISTOL-MYERS SQUIBB COMPANY-20744405

PATIENT
  Age: 8 Decade
  Sex: Male

DRUGS (2)
  1. ORENCIA [Suspect]
     Route: 042
  2. ABATACEPT SUBQ INJECTION 125MG/ML [Suspect]
     Dosage: IV LOAD
     Route: 058

REACTIONS (2)
  - Death [Fatal]
  - Pneumonia [Unknown]
